FAERS Safety Report 21545903 (Version 5)
Quarter: 2024Q4

REPORT INFORMATION
  Report Type: Report from Study
  Country: US (occurrence: US)
  Receive Date: 20221103
  Receipt Date: 20241009
  Transmission Date: 20250115
  Serious: No
  Sender: NOVARTIS
  Company Number: US-002147023-NVSC2022US245701

PATIENT
  Age: 50 Year
  Sex: Female

DRUGS (3)
  1. KESIMPTA [Suspect]
     Active Substance: OFATUMUMAB
     Indication: Product used for unknown indication
     Dosage: 20 MG, QMO
     Route: 058
     Dates: start: 20220630
  2. KESIMPTA [Suspect]
     Active Substance: OFATUMUMAB
     Dosage: UNK (SECOND DOSE)
     Route: 065
  3. KESIMPTA [Suspect]
     Active Substance: OFATUMUMAB
     Dosage: UNK (THIRD DOSE)
     Route: 065

REACTIONS (11)
  - Influenza like illness [Unknown]
  - Fatigue [Unknown]
  - Pain in extremity [Unknown]
  - Pyrexia [Unknown]
  - Headache [Unknown]
  - Body temperature decreased [Unknown]
  - Hypoaesthesia [Not Recovered/Not Resolved]
  - Poor quality sleep [Unknown]
  - Myalgia [Unknown]
  - Pruritus [Unknown]
  - Adverse drug reaction [Unknown]

NARRATIVE: CASE EVENT DATE: 20220630
